FAERS Safety Report 6567550-3 (Version None)
Quarter: 2010Q1

REPORT INFORMATION
  Report Type: 
  Country: None (occurrence: None)
  Receive Date: 20100202
  Receipt Date: 20100120
  Transmission Date: 20100710
  Serious: No
  Sender: FDA-Public Use
  Company Number: DE-ELI_LILLY_AND_COMPANY-DE201001004473

PATIENT
  Age: 17 Year
  Sex: Female

DRUGS (9)
  1. ZYPREXA [Suspect]
     Indication: BORDERLINE PERSONALITY DISORDER
     Dosage: 5 MG, DAILY (1/D)
     Route: 048
     Dates: start: 20091217, end: 20091220
  2. ZYPREXA [Suspect]
     Dosage: 10 MG, DAILY (1/D)
     Route: 048
     Dates: start: 20091221, end: 20091229
  3. ZYPREXA [Suspect]
     Dosage: 7.5 MG, DAILY (1/D)
     Route: 048
     Dates: start: 20091230, end: 20100103
  4. ZYPREXA [Suspect]
     Dosage: 10 MG, DAILY (1/D)
     Route: 048
     Dates: start: 20100104
  5. CIPRAMIL [Concomitant]
     Dosage: 10 MG, DAILY (1/D)
     Dates: start: 20091203, end: 20091209
  6. CIPRAMIL [Concomitant]
     Dosage: 20 MG, DAILY (1/D)
     Dates: start: 20091210, end: 20091214
  7. CIPRAMIL [Concomitant]
     Dosage: 30 MG, DAILY (1/D)
     Dates: start: 20091215
  8. FLUOXETINE [Concomitant]
     Dosage: 20 MG, UNK
     Dates: start: 20091203, end: 20091209
  9. FLUOXETINE [Concomitant]
     Dosage: 10 MG, UNK
     Dates: start: 20091210, end: 20091215

REACTIONS (4)
  - DIZZINESS [None]
  - NEUTROPHIL COUNT DECREASED [None]
  - OFF LABEL USE [None]
  - WHITE BLOOD CELL COUNT DECREASED [None]
